FAERS Safety Report 7943987-2 (Version None)
Quarter: 2011Q4

REPORT INFORMATION
  Report Type: 
  Country: None (occurrence: None)
  Receive Date: 20111128
  Receipt Date: 20111116
  Transmission Date: 20120403
  Serious: Yes (Hospitalization)
  Sender: FDA-Public Use
  Company Number: US-RB-034531-11

PATIENT
  Sex: Male

DRUGS (1)
  1. SUBOXONE [Suspect]
     Indication: DRUG ABUSE
     Dosage: UNKNOWN DOSAGE SPECIFICS
     Route: 065
     Dates: start: 20110101, end: 20110101

REACTIONS (3)
  - SUBSTANCE ABUSE [None]
  - THERAPY NAIVE [None]
  - MALAISE [None]
